FAERS Safety Report 13699100 (Version 3)
Quarter: 2017Q3

REPORT INFORMATION
  Report Type: Spontaneous
  Country: JP (occurrence: JP)
  Receive Date: 20170628
  Receipt Date: 20170818
  Transmission Date: 20171127
  Serious: Yes (Hospitalization, Other)
  Sender: FDA-Public Use
  Company Number: JP-GILEAD-2017-0277129

PATIENT
  Age: 63 Year
  Sex: Male

DRUGS (1)
  1. VEMLIDY [Suspect]
     Active Substance: TENOFOVIR ALAFENAMIDE FUMARATE
     Indication: CHRONIC HEPATITIS B
     Dosage: 25 MG, UNK
     Route: 048
     Dates: start: 20170328, end: 20170614

REACTIONS (1)
  - Hepatic cancer stage III [Recovered/Resolved]

NARRATIVE: CASE EVENT DATE: 20170328
